FAERS Safety Report 13045986 (Version 2)
Quarter: 2017Q3

REPORT INFORMATION
  Report Type: Spontaneous
  Country: ZA (occurrence: ZA)
  Receive Date: 20161220
  Receipt Date: 20170704
  Transmission Date: 20171127
  Serious: Yes (Hospitalization)
  Sender: FDA-Public Use
  Company Number: ZA-PFIZER INC-2016585845

PATIENT
  Age: 67 Year
  Sex: Female

DRUGS (11)
  1. REVATIO [Suspect]
     Active Substance: SILDENAFIL CITRATE
     Indication: PULMONARY ARTERIAL HYPERTENSION
     Dosage: 20 MG, 3X/DAY
     Route: 048
     Dates: start: 201609
  2. SERLIFE [Concomitant]
     Active Substance: SERTRALINE HYDROCHLORIDE
     Indication: DEPRESSION
     Dosage: 50 MG, 1X/DAY
     Route: 048
  3. SERLIFE [Concomitant]
     Active Substance: SERTRALINE HYDROCHLORIDE
     Indication: OBSESSIVE-COMPULSIVE DISORDER
  4. SERLIFE [Concomitant]
     Active Substance: SERTRALINE HYDROCHLORIDE
     Indication: INSOMNIA
  5. ADCO-SIMVASTATIN [Concomitant]
     Active Substance: SIMVASTATIN
     Indication: BLOOD CHOLESTEROL ABNORMAL
     Dosage: 25 MG, 1X/DAY AT NIGHT
     Route: 048
  6. ADCO-SIMVASTATIN [Concomitant]
     Active Substance: SIMVASTATIN
     Dosage: 20 MG, DAILY (AT NIGHT)
  7. SERLIFE [Concomitant]
     Active Substance: SERTRALINE HYDROCHLORIDE
     Indication: ANXIETY
  8. MYLAN METFORMIN [Concomitant]
     Indication: TYPE 2 DIABETES MELLITUS
     Dosage: 500 MG, 1X/DAY
     Route: 048
  9. TREPILINE /00002201/ [Concomitant]
     Active Substance: AMITRIPTYLINE
     Indication: DEPRESSION
     Dosage: 25 MG, 1X/DAY AT NIGHT
     Route: 048
  10. TREPILINE /00002201/ [Concomitant]
     Active Substance: AMITRIPTYLINE
     Indication: ANXIETY
  11. SERLIFE [Concomitant]
     Active Substance: SERTRALINE HYDROCHLORIDE
     Indication: STRESS

REACTIONS (1)
  - Circulatory collapse [Unknown]

NARRATIVE: CASE EVENT DATE: 201609
